FAERS Safety Report 14163991 (Version 1)
Quarter: 2017Q4

REPORT INFORMATION
  Report Type: Report from Study
  Country: None (occurrence: US)
  Receive Date: 20171107
  Receipt Date: 20171107
  Transmission Date: 20180321
  Serious: Yes (Other)
  Sender: FDA-Public Use
  Company Number: US-ABBVIE-17K-163-2105370-00

PATIENT
  Age: 62 Year
  Sex: Male
  Weight: 107.14 kg

DRUGS (8)
  1. HUMIRA [Suspect]
     Active Substance: ADALIMUMAB
     Indication: ANKYLOSING SPONDYLITIS
     Route: 058
     Dates: start: 2014, end: 2017
  2. TRAMADOL. [Concomitant]
     Active Substance: TRAMADOL
     Indication: PAIN
  3. NAPROXEN. [Concomitant]
     Active Substance: NAPROXEN
     Indication: INFLAMMATION
  4. NOVOLIN INSULIN [Concomitant]
     Indication: DIABETES MELLITUS
  5. SULFASALAZINE ER [Concomitant]
     Indication: ARTHRITIS
  6. SULFASALAZINE ER [Concomitant]
     Indication: ANKYLOSING SPONDYLITIS
  7. GABAPENTIN. [Concomitant]
     Active Substance: GABAPENTIN
     Indication: NEUROPATHY PERIPHERAL
  8. HUMIRA [Suspect]
     Active Substance: ADALIMUMAB
     Route: 058
     Dates: start: 201708

REACTIONS (2)
  - Carpal tunnel syndrome [Recovering/Resolving]
  - Nerve injury [Recovering/Resolving]

NARRATIVE: CASE EVENT DATE: 201703
